FAERS Safety Report 10693568 (Version 1)
Quarter: 2015Q1

REPORT INFORMATION
  Report Type: Other
  Country: GB (occurrence: GB)
  Receive Date: 20150106
  Receipt Date: 20150106
  Transmission Date: 20150721
  Serious: Yes (Hospitalization)
  Sender: FDA-Public Use
  Company Number: GB-MYLANLABS-2015M1000032

PATIENT

DRUGS (7)
  1. FELODIPINE. [Concomitant]
     Active Substance: FELODIPINE
     Dates: start: 19950101
  2. CISPLATIN. [Suspect]
     Active Substance: CISPLATIN
     Dosage: UNK
  3. ALENDRONIC ACID [Concomitant]
     Active Substance: ALENDRONIC ACID
     Dosage: UNK
     Dates: start: 20000901
  4. CALCICHEW D3 [Concomitant]
     Active Substance: CALCIUM\CHOLECALCIFEROL
  5. ETANERCEPT [Suspect]
     Active Substance: ETANERCEPT
     Dosage: 50 MG, QW
     Dates: start: 20110530
  6. THIAMINE [Concomitant]
     Active Substance: THIAMINE
     Dates: start: 19950101
  7. DICLOFENAC [Concomitant]
     Active Substance: DICLOFENAC
     Dates: start: 20110202

REACTIONS (5)
  - Blood magnesium decreased [Unknown]
  - Haemoglobin decreased [Unknown]
  - Malaise [Unknown]
  - Acute myocardial infarction [Unknown]
  - Dizziness [Unknown]
